FAERS Safety Report 22631057 (Version 1)
Quarter: 2023Q2

REPORT INFORMATION
  Report Type: Report from Study
  Country: US (occurrence: US)
  Receive Date: 20230622
  Receipt Date: 20230622
  Transmission Date: 20230721
  Serious: No
  Sender: FDA-Public Use
  Company Number: US-ACADIA PHARMACEUTICALS INC.-ACA-2023-PIM-002141

PATIENT
  Age: 22 Year
  Sex: Male

DRUGS (5)
  1. NUPLAZID [Suspect]
     Active Substance: PIMAVANSERIN TARTRATE
     Indication: Parkinson^s disease
     Dosage: 34 MILLIGRAM, QD
     Route: 048
     Dates: start: 202302, end: 202302
  2. LORAZEPAM [Concomitant]
     Active Substance: LORAZEPAM
  3. TOPIRAMATE [Concomitant]
     Active Substance: TOPIRAMATE
  4. CLOZAPINE [Concomitant]
     Active Substance: CLOZAPINE
  5. THEANINE [Concomitant]
     Active Substance: THEANINE

REACTIONS (3)
  - Delusion [Unknown]
  - Product dose omission issue [Unknown]
  - Hallucination, auditory [Unknown]

NARRATIVE: CASE EVENT DATE: 20230201
